FAERS Safety Report 5077511-1 (Version None)
Quarter: 2006Q3

REPORT INFORMATION
  Report Type: 
  Country: None (occurrence: None)
  Receive Date: 20060810
  Receipt Date: 20060321
  Transmission Date: 20061208
  Serious: No
  Sender: FDA-Public Use
  Company Number: US-GLAXOSMITHKLINE-A0598448A

PATIENT
  Age: 51 Year
  Sex: Female

DRUGS (7)
  1. PAXIL [Suspect]
     Indication: DEPRESSION
     Dosage: 30MG PER DAY
     Route: 048
     Dates: start: 20051110, end: 20060218
  2. DYAZIDE [Concomitant]
  3. SOLU-MEDROL [Concomitant]
  4. NORVASC [Concomitant]
  5. LISINOPRIL [Concomitant]
  6. PROTONIX [Concomitant]
  7. ALCOHOL [Concomitant]

REACTIONS (5)
  - ALCOHOL INTOLERANCE [None]
  - DRUG WITHDRAWAL SYNDROME [None]
  - DYSGEUSIA [None]
  - HYPERHIDROSIS [None]
  - NAUSEA [None]
